FAERS Safety Report 13913430 (Version 1)
Quarter: 2017Q3

REPORT INFORMATION
  Report Type: Spontaneous
  Country: US (occurrence: US)
  Receive Date: 20170828
  Receipt Date: 20170828
  Transmission Date: 20171127
  Serious: No
  Sender: FDA-Public Use
  Company Number: US-ROCHE-1132630

PATIENT
  Sex: Female

DRUGS (7)
  1. PREDNISONE. [Concomitant]
     Active Substance: PREDNISONE
     Route: 065
  2. CLONIDINE PATCH [Concomitant]
     Active Substance: CLONIDINE
     Route: 065
  3. NIFEDIPINE. [Concomitant]
     Active Substance: NIFEDIPINE
     Route: 065
  4. AZATHIOPRINE. [Concomitant]
     Active Substance: AZATHIOPRINE
     Route: 065
  5. NUTROPIN [Suspect]
     Active Substance: SOMATROPIN
     Indication: RENAL TRANSPLANT
     Route: 058
     Dates: start: 199809
  6. FK 506 [Concomitant]
     Active Substance: TACROLIMUS
     Route: 065
  7. LABETALOL [Concomitant]
     Active Substance: LABETALOL\LABETALOL HYDROCHLORIDE
     Route: 065

REACTIONS (3)
  - Pneumonia [Unknown]
  - Rash [Unknown]
  - Pyrexia [Unknown]
